FAERS Safety Report 10027330 (Version 1)
Quarter: 2014Q1

REPORT INFORMATION
  Report Type: Report from Study
  Country: KR (occurrence: KR)
  Receive Date: 20140321
  Receipt Date: 20140321
  Transmission Date: 20141002
  Serious: Yes (Hospitalization)
  Sender: FDA-Public Use
  Company Number: KR-ASTELLAS-2014JP002490

PATIENT
  Age: 66 Year
  Sex: Female
  Weight: 42.3 kg

DRUGS (10)
  1. TACROLIMUS CAPSULES [Suspect]
     Indication: IMMUNOSUPPRESSANT DRUG THERAPY
     Dosage: 5 MG, UNKNOWN/D
     Route: 048
     Dates: start: 20140212, end: 20140305
  2. TACROLIMUS CAPSULES [Suspect]
     Dosage: UNK
     Route: 048
     Dates: start: 20131029
  3. TACROLIMUS CAPSULES [Suspect]
     Dosage: 2.5 MG, UNKNOWN/D
     Route: 048
     Dates: start: 20140306, end: 20140306
  4. TACROLIMUS CAPSULES [Suspect]
     Dosage: 2 MG, UNKNOWN/D
     Route: 048
     Dates: start: 20140311, end: 20140311
  5. TACROLIMUS CAPSULES [Suspect]
     Dosage: 4 MG, UNKNOWN/D
     Route: 048
     Dates: start: 20140312
  6. PROGRAF [Suspect]
     Indication: IMMUNOSUPPRESSANT DRUG THERAPY
     Dosage: UNK
     Route: 042
     Dates: start: 20131025, end: 20131029
  7. SEPTRIN [Concomitant]
     Dosage: 2 DF, QOD
     Route: 048
     Dates: start: 20131127
  8. WARFARIN [Concomitant]
     Dosage: 2 MG, UID/QD
     Route: 048
     Dates: start: 20131126
  9. CELLCEPT                           /01275102/ [Concomitant]
     Dosage: 250 MG, BID
     Route: 048
     Dates: start: 20131203
  10. ULCERLMIN [Concomitant]
     Dosage: 15 ML, QID
     Route: 048
     Dates: start: 20131025

REACTIONS (2)
  - Bile duct stone [Recovered/Resolved]
  - Cholangitis [Recovered/Resolved]
